FAERS Safety Report 4686103-5 (Version None)
Quarter: 2005Q2

REPORT INFORMATION
  Report Type: 
  Country: None (occurrence: None)
  Receive Date: 20050603
  Receipt Date: 20050527
  Transmission Date: 20051028
  Serious: Yes (Disabling)
  Sender: FDA-Public Use
  Company Number: GBWYE606421APR05

PATIENT
  Age: 57 Year
  Sex: Male

DRUGS (2)
  1. EFEXOR XL (VENLAFAXINE HYDROCHLORIDE, CAPSULE, EXTENEDED RELEASE, 0) [Suspect]
     Dosage: 75 MG 1X PER 1 DAY ORAL
     Route: 048
     Dates: start: 20041201
  2. PARIET (RABEPRAZOLE) [Concomitant]

REACTIONS (5)
  - BLOOD PRESSURE INCREASED [None]
  - FEELING ABNORMAL [None]
  - NARCOLEPSY [None]
  - SENSORY DISTURBANCE [None]
  - STRESS [None]
